FAERS Safety Report 5870432-3 (Version None)
Quarter: 2008Q3

REPORT INFORMATION
  Report Type: 
  Country: None (occurrence: None)
  Receive Date: 20080904
  Receipt Date: 20080613
  Transmission Date: 20090109
  Serious: No
  Sender: FDA-Public Use
  Company Number: US-BRISTOL-MYERS SQUIBB COMPANY-14226997

PATIENT
  Age: 54 Year
  Sex: Female
  Weight: 76 kg

DRUGS (9)
  1. DEFINITY [Suspect]
     Indication: ECHOCARDIOGRAM
     Dates: start: 20080613
  2. FELODIPINE [Concomitant]
  3. SINGULAIR [Concomitant]
  4. DIOVAN [Concomitant]
  5. SOTALOL HCL [Concomitant]
  6. PRILOSEC [Concomitant]
  7. XYZAL [Concomitant]
  8. MUCOMYST [Concomitant]
  9. TYLENOL (CAPLET) [Concomitant]

REACTIONS (1)
  - BACK PAIN [None]
